FAERS Safety Report 5200653-4 (Version None)
Quarter: 2006Q4

REPORT INFORMATION
  Report Type: 
  Country: None (occurrence: None)
  Receive Date: 20061016
  Receipt Date: 20060707
  Transmission Date: 20070319
  Serious: No
  Sender: FDA-Public Use
  Company Number: 2006SP002632

PATIENT
  Age: 76 Year
  Sex: Female

DRUGS (7)
  1. LUNESTA [Suspect]
     Indication: INSOMNIA
     Dosage: 1 MG; ORAL
     Route: 048
     Dates: start: 20060101, end: 20060501
  2. METOPROLOL SUCCINATE [Concomitant]
  3. AMLODIPINE BESYLATE [Concomitant]
  4. PROCARDIA [Concomitant]
  5. SIMVASTATIN [Concomitant]
  6. ACCUPRIL [Concomitant]
  7. ASPIRIN [Concomitant]

REACTIONS (1)
  - HALLUCINATION [None]
